FAERS Safety Report 19674115 (Version 35)
Quarter: 2022Q3

REPORT INFORMATION
  Report Type: Report from Study
  Country: GB (occurrence: GB)
  Receive Date: 20210809
  Receipt Date: 20220927
  Transmission Date: 20221027
  Serious: Yes (Death, Hospitalization, Other)
  Sender: FDA-Public Use
  Company Number: GB-CELLTRION INC.-2018GB025437

PATIENT

DRUGS (186)
  1. TRASTUZUMAB [Suspect]
     Active Substance: TRASTUZUMAB
     Indication: HER2 positive breast cancer
     Dosage: 140 MILLIGRAM, Q3WK (DOSAGE FORM: 120
     Route: 042
     Dates: start: 20151201, end: 20160215
  2. TRASTUZUMAB [Suspect]
     Active Substance: TRASTUZUMAB
     Indication: Breast cancer metastatic
     Dosage: 140 MG, Q3W (DOSE FORM: 230)
     Route: 042
  3. TRASTUZUMAB [Suspect]
     Active Substance: TRASTUZUMAB
     Dosage: 140 MILLIGRAM, Q3W (DOSE FORM 120)/140 MILLIGRAM, Q3WK, 140 MILLIGRAM, Q3W,DOSE REDUCED
     Route: 042
     Dates: start: 20160215, end: 20160215
  4. TRASTUZUMAB [Suspect]
     Active Substance: TRASTUZUMAB
     Dosage: 300 MILLIGRAM, Q3W (DOSE MODIFIED)
     Route: 042
     Dates: start: 20150629, end: 20151102
  5. TRASTUZUMAB [Suspect]
     Active Substance: TRASTUZUMAB
     Dosage: 350 MILLIGRAM (350 MILLIGRAM, UNK, LOADING DOSE)
     Route: 042
     Dates: start: 20150601, end: 20150601
  6. TRASTUZUMAB [Suspect]
     Active Substance: TRASTUZUMAB
     Dosage: 350 MILLIGRAM, LOADING DOSE (DOSE FORM: 120)
     Route: 042
     Dates: start: 20150601, end: 20150601
  7. TRASTUZUMAB [Suspect]
     Active Substance: TRASTUZUMAB
     Dosage: 140 MILLIGRAM, Q3W (DOSE FORM: 120)
     Route: 042
     Dates: start: 20160215, end: 20160215
  8. TRASTUZUMAB [Suspect]
     Active Substance: TRASTUZUMAB
     Dosage: 300 MILLIGRAM, Q3W (DOSE MODIFIED)
     Route: 042
     Dates: start: 20150601, end: 20151101
  9. TRASTUZUMAB [Suspect]
     Active Substance: TRASTUZUMAB
     Dosage: 1 DOSAGE FORM, Q3W,DOSE REDUCED (PHARMACEUTICAL DOSE FORM: 230)
     Route: 042
  10. TRASTUZUMAB [Suspect]
     Active Substance: TRASTUZUMAB
     Dosage: 300 MG, Q3W (DOSE FORM: 230)
     Route: 042
  11. TRASTUZUMAB [Suspect]
     Active Substance: TRASTUZUMAB
     Dosage: 172 MILLIGRAM, Q3W (CUMULATIVE DOSE: 1320.2777 MG)
     Route: 042
     Dates: start: 20151201, end: 20151221
  12. TRASTUZUMAB [Suspect]
     Active Substance: TRASTUZUMAB
     Dosage: 172 MILLIGRAM, Q3W
     Route: 042
     Dates: start: 20151201, end: 20151221
  13. TRASTUZUMAB [Suspect]
     Active Substance: TRASTUZUMAB
     Dosage: UNKNOWN, Q3W, DOSE REDUCED (DOSE FORM: 120)
     Route: 042
  14. TRASTUZUMAB [Suspect]
     Active Substance: TRASTUZUMAB
     Dosage: 300 MILLIGRAM, Q3W (DOSE MODIFIED)
     Route: 042
     Dates: start: 20150629, end: 20151102
  15. TRASTUZUMAB [Suspect]
     Active Substance: TRASTUZUMAB
     Dosage: DOSE: 1, EVERY 3 WEEKS, DOSE REDUCED (PHARMACEUTICAL DOSAGE FORM: 230)/1 DF
     Route: 042
  16. TRASTUZUMAB [Suspect]
     Active Substance: TRASTUZUMAB
     Dosage: 1 DF, Q3W,DOSE REDUCED (DOSE FORM: 230)
     Route: 042
  17. TRASTUZUMAB [Suspect]
     Active Substance: TRASTUZUMAB
     Dosage: 300 MG, Q3W (DOSE FORM: 230; CUMULATIVE DOSE: 999.57935 MG)
     Route: 042
     Dates: start: 20150629, end: 20151102
  18. TRASTUZUMAB [Suspect]
     Active Substance: TRASTUZUMAB
     Dosage: 350 MG, (LOADING DOSE FORM: INFUSION, SOLUTION; DOSE FORM: 230)
     Route: 041
     Dates: start: 20150601, end: 20150601
  19. TRASTUZUMAB [Suspect]
     Active Substance: TRASTUZUMAB
     Dosage: 350 MG, (LOADING DOSE FORM: INFUSION, SOLUTION; DOSE FORM: 230)
     Route: 041
     Dates: start: 20150601, end: 20150601
  20. TRASTUZUMAB [Suspect]
     Active Substance: TRASTUZUMAB
     Dosage: 140 MILLIGRAM, EVERY 3 WEEKS (PHARMACEUTICAL DOSE FORM: 230)
     Route: 042
     Dates: start: 20160215, end: 20160215
  21. TRASTUZUMAB [Suspect]
     Active Substance: TRASTUZUMAB
     Dosage: 140 MILLIGRAM, Q3W (DOSAGE FORM: 230)
     Route: 042
     Dates: start: 20160215, end: 20160215
  22. TRASTUZUMAB [Suspect]
     Active Substance: TRASTUZUMAB
     Dosage: 350 MG, LOADING DOSE
     Route: 042
     Dates: start: 20150601, end: 20150601
  23. TRASTUZUMAB [Suspect]
     Active Substance: TRASTUZUMAB
     Dosage: 350 MILLIGRAM, LOADING DOSE350 MG, LOADING DOSE
     Route: 042
     Dates: start: 20150601, end: 20150601
  24. TRASTUZUMAB [Suspect]
     Active Substance: TRASTUZUMAB
     Dosage: 300 MG, 3 WEEK
     Route: 042
     Dates: start: 20150629, end: 20150629
  25. TRASTUZUMAB [Suspect]
     Active Substance: TRASTUZUMAB
     Dosage: 300 MG, 3 WEEK (DOSE MODIFIED)
     Route: 042
     Dates: start: 20151102, end: 20151102
  26. TRASTUZUMAB [Suspect]
     Active Substance: TRASTUZUMAB
     Dosage: 172 MILLIGRAM, Q3W;  (DOSAGE TEXT: DOSE REDUCED)
     Route: 042
     Dates: start: 20151201, end: 20151221
  27. TRASTUZUMAB [Suspect]
     Active Substance: TRASTUZUMAB
     Dosage: UNKNOWN, Q3W, DOSE REDUCED
     Route: 042
  28. TRASTUZUMAB [Suspect]
     Active Substance: TRASTUZUMAB
     Dosage: 300 MILLIGRAM, Q3W (DOSE MODIFIED)/2 PER WEEK
     Route: 042
     Dates: start: 20150629, end: 20151102
  29. TRASTUZUMAB [Suspect]
     Active Substance: TRASTUZUMAB
     Dosage: UNK: EVERY 3 WEEK (DOSE REDUCED.; PHARMACEUTICAL DOSE FORM: 230)
     Route: 042
  30. TRASTUZUMAB [Suspect]
     Active Substance: TRASTUZUMAB
     Dosage: 350 MG, (LOADING DOSE FORM: INFUSION, SOLUTION)
     Route: 042
     Dates: start: 20150601
  31. TRASTUZUMAB [Suspect]
     Active Substance: TRASTUZUMAB
     Dosage: 172 MG, Q3W (DOSE FORM: 293; CUMULATIVE DOSE: 7420.23 MG)
     Route: 042
     Dates: start: 20151201, end: 20151221
  32. TRASTUZUMAB [Suspect]
     Active Substance: TRASTUZUMAB
     Dosage: 350 MILLIGRAM, UNK, LOADING DOSE (PHARMACEUTICAL DOSE FORM: 293)
     Route: 042
     Dates: start: 20150601, end: 20150601
  33. TRASTUZUMAB [Suspect]
     Active Substance: TRASTUZUMAB
     Dosage: 140 MILLIGRAM, Q3WK (PHARMACEUTICAL DOSE FORM: 293; CUMULATIVE DOSE: 5533.0557 MG)
     Route: 042
     Dates: start: 20160215, end: 20160215
  34. TRASTUZUMAB [Suspect]
     Active Substance: TRASTUZUMAB
     Dosage: 300 MG, Q3WK(DOSE FORM: 293; CUMULATIVE DOSE: 15157.143 MG)
     Route: 042
     Dates: start: 20150629, end: 20151102
  35. TRASTUZUMAB [Suspect]
     Active Substance: TRASTUZUMAB
     Dosage: LOADING DOSE
     Route: 041
     Dates: start: 20150601, end: 20150601
  36. TRASTUZUMAB [Suspect]
     Active Substance: TRASTUZUMAB
     Dosage: UNK: EVERY 3 WEEK (DOSE REDUCED.; PHARMACEUTICAL DOSE FORM: 230)
     Route: 042
  37. TRASTUZUMAB [Suspect]
     Active Substance: TRASTUZUMAB
     Dosage: 300 MG, EVERY 3 WEEKS (ALSO RECEIVED 350 MG ON 01-JUN-2015) (PHARMACEUTICAL DOSE FORM: 230)
     Route: 042
     Dates: start: 20150629, end: 20151102
  38. TRASTUZUMAB [Suspect]
     Active Substance: TRASTUZUMAB
     Dosage: 1 MG, EVERY 3 WEEKS, DOSE REDUCED (PHARMACEUTICAL DOSE FORM: 230)
     Route: 042
  39. TRASTUZUMAB [Suspect]
     Active Substance: TRASTUZUMAB
     Dosage: 300 MG, EVERY 3 WEEKS, DOSE MODIFIED
     Route: 042
     Dates: start: 20150601, end: 20151101
  40. TRASTUZUMAB [Suspect]
     Active Substance: TRASTUZUMAB
     Dosage: 300 MILLIGRAM, (LOADING DOSE; DOSE FORM: 230; CUMULATIVE DOSE: 471.42856 MG)
     Route: 042
     Dates: start: 20150601, end: 20150601
  41. TRASTUZUMAB [Suspect]
     Active Substance: TRASTUZUMAB
     Dosage: 300 MILLIGRAM, (LOADING DOSE; DOSE FORM: 230; CUMULATIVE DOSE: 471.42856 MG)
     Route: 042
     Dates: start: 20150601, end: 20150601
  42. TRASTUZUMAB [Suspect]
     Active Substance: TRASTUZUMAB
     Dosage: 172 MG, Q3W PHARMACEUTICAL DOSAGE FORM: 230;
     Route: 042
     Dates: start: 20151201, end: 20151221
  43. TRASTUZUMAB [Suspect]
     Active Substance: TRASTUZUMAB
     Dosage: 140 MG, EVERY 3 WEEKS (DOSE REDUCED)
     Route: 042
     Dates: start: 20151201, end: 20151221
  44. TRASTUZUMAB [Suspect]
     Active Substance: TRASTUZUMAB
     Dosage: 172 MG, Q3W PHARMACEUTICAL DOSAGE FORM: 230) (CUMULATIVE DOSE: 1320.2777 MG)
     Route: 042
     Dates: start: 20151201, end: 20151221
  45. TRASTUZUMAB [Suspect]
     Active Substance: TRASTUZUMAB
     Dosage: LOADING DOSE FORM: INFUSION, SOLUTION; (DOE FORM: 230)
     Route: 041
     Dates: start: 20150601, end: 20150601
  46. TRASTUZUMAB [Suspect]
     Active Substance: TRASTUZUMAB
     Dosage: 350 MILLIGRAM, LOADING DOSE; EVERY 3 WEEKS (PHARMACEUTICAL DOSE FORM: 230)
     Route: 042
     Dates: start: 20150601, end: 20150601
  47. TRASTUZUMAB [Suspect]
     Active Substance: TRASTUZUMAB
     Dosage: DOSE REDUCED., EVERY 3 WEEKS
     Route: 042
  48. VINORELBINE [Suspect]
     Active Substance: VINORELBINE TARTRATE
     Indication: HER2 positive breast cancer
     Dosage: 60 MILLIGRAM
     Route: 048
     Dates: start: 20180608, end: 20180810
  49. VINORELBINE [Suspect]
     Active Substance: VINORELBINE TARTRATE
     Indication: Breast cancer metastatic
     Dosage: 60 MILLIGRAM
     Route: 048
     Dates: start: 20180530, end: 20180608
  50. VINORELBINE [Suspect]
     Active Substance: VINORELBINE TARTRATE
     Dosage: 60 MILLIGRAM
     Route: 048
  51. VINORELBINE [Suspect]
     Active Substance: VINORELBINE TARTRATE
     Dosage: 60 MILLIGRAM
     Route: 048
     Dates: start: 20180503, end: 20180608
  52. PERTUZUMAB [Suspect]
     Active Substance: PERTUZUMAB
     Indication: HER2 positive breast cancer
     Dosage: 840 MILLIGRAM, 1DF
     Route: 042
  53. PERTUZUMAB [Suspect]
     Active Substance: PERTUZUMAB
     Indication: Breast cancer metastatic
     Dosage: TARGETED THERAPY, 420 MG
     Route: 042
     Dates: start: 20150622, end: 20151102
  54. PERTUZUMAB [Suspect]
     Active Substance: PERTUZUMAB
     Dosage: LOADING DOSE , 840 MG
     Route: 042
  55. PERTUZUMAB [Suspect]
     Active Substance: PERTUZUMAB
     Dosage: 420 MILLIGRAM, Q3W TARGETED  THERAPY (DOSE FORM: 230; CUMULATIVE DOSE: 570.448 MG)
     Route: 042
     Dates: start: 20150622, end: 20151102
  56. PERTUZUMAB [Suspect]
     Active Substance: PERTUZUMAB
     Dosage: 840 MILLIGRAM, Q3W (1 DF) (DOSE FORM: 230; 570.448 MG)
     Route: 042
  57. PERTUZUMAB [Suspect]
     Active Substance: PERTUZUMAB
     Dosage: 1 DOSAGE FORM, Q3W, UNK, Q3WK, DOSE REDUCED
     Route: 042
  58. PERTUZUMAB [Suspect]
     Active Substance: PERTUZUMAB
     Dosage: 420 MG, Q3W TARGETED THERAPY
     Route: 041
     Dates: start: 20150622, end: 20150622
  59. PERTUZUMAB [Suspect]
     Active Substance: PERTUZUMAB
     Dosage: 420 MILLIGRAM, Q3W, TARGETED THERAPY (DOSE FORM: 230, CUMULATIVE DOSE: 570.448 MG)
     Route: 042
  60. PERTUZUMAB [Suspect]
     Active Substance: PERTUZUMAB
     Dosage: 420 MG, Q3W, TARGETED THERAPY (DOSE FORM 230; CUMULATIVE DOSE: 800.0 MG)
     Route: 041
     Dates: start: 20150622, end: 20151102
  61. PERTUZUMAB [Suspect]
     Active Substance: PERTUZUMAB
     Dosage: 1 DF, EVERY 3 WEEKS (DOSE FORM 230)
     Route: 042
  62. PERTUZUMAB [Suspect]
     Active Substance: PERTUZUMAB
     Dosage: 1 DOSAGE FORM (DOSE FORM 230; CUMULATIVE DOSE: 570.448 MG)
     Route: 042
  63. PERTUZUMAB [Suspect]
     Active Substance: PERTUZUMAB
     Indication: Breast cancer metastatic
     Dosage: 840 MG, EVERY 2 WEEK (LOADING DOSE)
     Route: 048
  64. PERTUZUMAB [Suspect]
     Active Substance: PERTUZUMAB
     Dosage: 840 MG, EVERY 3 WEEK (1 DF, 3 WEEKS)
     Route: 048
  65. PERTUZUMAB [Suspect]
     Active Substance: PERTUZUMAB
     Dosage: 420 MG, EVERY 3 WEEKS (TARGETED THERAPY)
     Route: 042
     Dates: start: 20150622, end: 20151102
  66. PERTUZUMAB [Suspect]
     Active Substance: PERTUZUMAB
     Dosage: 1 DF
     Route: 048
  67. PERTUZUMAB [Suspect]
     Active Substance: PERTUZUMAB
     Dosage: 420 MG EVERY 3 WEEKS, (TARGETED THERAPY)
     Route: 048
  68. DOCETAXEL [Suspect]
     Active Substance: DOCETAXEL
     Indication: Breast cancer metastatic
     Dosage: 80 MG, EVERY 3 WEEKS
     Route: 042
     Dates: start: 20150602, end: 20150602
  69. DOCETAXEL [Suspect]
     Active Substance: DOCETAXEL
     Indication: HER2 positive breast cancer
     Dosage: UNK
     Route: 042
     Dates: start: 20150629
  70. DOCETAXEL [Suspect]
     Active Substance: DOCETAXEL
     Dosage: 108 MG, EVERY 3 WEEKS
     Route: 042
  71. DOCETAXEL [Suspect]
     Active Substance: DOCETAXEL
     Dosage: 108 MILLIGRAM, Q3W,DOSE MODIFIED
     Route: 042
     Dates: start: 20150602, end: 20150602
  72. DOCETAXEL [Suspect]
     Active Substance: DOCETAXEL
     Dosage: DOSE DISCONTINUED / 80 MG Q2WEEKS
     Route: 042
     Dates: start: 20150629, end: 20150720
  73. DOCETAXEL [Suspect]
     Active Substance: DOCETAXEL
     Dosage: 108 MG EVERY 3 WEEKS
     Route: 042
  74. DOCETAXEL [Suspect]
     Active Substance: DOCETAXEL
     Dosage: 86 MILLIGRAM, Q3W, DOSE DISCONTINUED, THREE WEEK
     Dates: start: 20150629, end: 20150720
  75. DOCETAXEL [Suspect]
     Active Substance: DOCETAXEL
     Dosage: 80 MILLIGRAM
     Dates: start: 20150629
  76. DOCETAXEL [Suspect]
     Active Substance: DOCETAXEL
     Dosage: 80 MILLIGRAM EVERY 3 WEEK
     Route: 042
     Dates: start: 20150602, end: 20150602
  77. ERIBULIN MESYLATE [Suspect]
     Active Substance: ERIBULIN MESYLATE
     Indication: HER2 positive breast cancer
     Dosage: 1.5 MILLIGRAM, Q3W
     Route: 042
     Dates: start: 20160411, end: 20160624
  78. ERIBULIN MESYLATE [Suspect]
     Active Substance: ERIBULIN MESYLATE
     Indication: Breast cancer metastatic
  79. ERIBULIN MESYLATE [Suspect]
     Active Substance: ERIBULIN MESYLATE
     Indication: Breast cancer metastatic
     Dosage: UNK
  80. ERIBULIN MESYLATE [Suspect]
     Active Substance: ERIBULIN MESYLATE
     Indication: HER2 positive breast cancer
     Dosage: 1.5 MG EVERY 3 WEEK
     Route: 042
     Dates: start: 20160411
  81. ERIBULIN MESYLATE [Suspect]
     Active Substance: ERIBULIN MESYLATE
     Dosage: 1.5 MG EVERY 3 WEEK
     Route: 042
  82. ERIBULIN MESYLATE [Suspect]
     Active Substance: ERIBULIN MESYLATE
     Dosage: 1.5 MG EVERY 3 WEEK
     Route: 042
     Dates: start: 20160411, end: 20160624
  83. ERIBULIN MESYLATE [Suspect]
     Active Substance: ERIBULIN MESYLATE
     Dosage: 1.5 MG EVERY 2 WEEK
     Route: 042
  84. ERIBULIN MESYLATE [Suspect]
     Active Substance: ERIBULIN MESYLATE
     Dosage: 1.5 MG EVERY 2 WEEK
     Route: 042
  85. ERIBULIN MESYLATE [Suspect]
     Active Substance: ERIBULIN MESYLATE
     Dosage: 1.5 MG EVERY 3 WEEK
     Route: 042
     Dates: start: 20160624, end: 20160624
  86. NERATINIB [Suspect]
     Active Substance: NERATINIB
     Indication: Breast cancer metastatic
     Dosage: 240 MILLIGRAM, QD
     Route: 048
     Dates: start: 20170901, end: 20180216
  87. NERATINIB [Suspect]
     Active Substance: NERATINIB
     Indication: HER2 positive breast cancer
     Dosage: 240 MILLIGRAM, QD
     Route: 048
     Dates: start: 20180223, end: 20180420
  88. NERATINIB [Suspect]
     Active Substance: NERATINIB
     Dosage: 40 MILLIGRAM, QD
     Dates: start: 20170901, end: 20180314
  89. NERATINIB [Suspect]
     Active Substance: NERATINIB
     Dosage: UNK
  90. NERATINIB [Suspect]
     Active Substance: NERATINIB
     Dosage: 240 MG, 1 DAY
  91. NERATINIB [Suspect]
     Active Substance: NERATINIB
     Dosage: 240 MG, 1 DAY
     Route: 048
     Dates: start: 20170901, end: 20180314
  92. NERATINIB [Suspect]
     Active Substance: NERATINIB
     Dosage: 40 MG, 1 DAY
     Route: 048
  93. NERATINIB [Suspect]
     Active Substance: NERATINIB
     Dosage: 240 MG, 1 DAY
     Route: 048
     Dates: start: 20170901, end: 20180314
  94. NERATINIB [Suspect]
     Active Substance: NERATINIB
     Dosage: 240 MG, 1 DAY
     Route: 048
     Dates: start: 20180223, end: 20180402
  95. ADO-TRASTUZUMAB EMTANSINE [Suspect]
     Active Substance: ADO-TRASTUZUMAB EMTANSINE
     Indication: HER2 positive breast cancer
     Dosage: 140 MG, Q3W (DOSE FORM: 230)
     Route: 042
     Dates: start: 20160215, end: 20160215
  96. ADO-TRASTUZUMAB EMTANSINE [Suspect]
     Active Substance: ADO-TRASTUZUMAB EMTANSINE
     Indication: Breast cancer metastatic
     Dosage: 172 MG, Q3W (DOSE FORM: 230)
     Route: 041
     Dates: start: 20151201, end: 20151221
  97. ADO-TRASTUZUMAB EMTANSINE [Suspect]
     Active Substance: ADO-TRASTUZUMAB EMTANSINE
     Dosage: 172 MG, Q3W (DOSE FORM: 230)
     Route: 041
     Dates: start: 20151201, end: 20151221
  98. ADO-TRASTUZUMAB EMTANSINE [Suspect]
     Active Substance: ADO-TRASTUZUMAB EMTANSINE
     Dosage: 140 MILLIGRAM, Q3W
     Route: 042
     Dates: start: 20151201, end: 20160215
  99. ADO-TRASTUZUMAB EMTANSINE [Suspect]
     Active Substance: ADO-TRASTUZUMAB EMTANSINE
     Dosage: 140 MILLIGRAM, Q3W (DOSE FORM: 230)
     Route: 042
     Dates: start: 20151201
  100. ADO-TRASTUZUMAB EMTANSINE [Suspect]
     Active Substance: ADO-TRASTUZUMAB EMTANSINE
     Dosage: 172 MG, Q3W (DOSE FORM: 230)
     Route: 042
     Dates: start: 20151201
  101. ADO-TRASTUZUMAB EMTANSINE [Suspect]
     Active Substance: ADO-TRASTUZUMAB EMTANSINE
     Dosage: 140 MG, Q3W (DOSE FORM: 230)
     Route: 042
     Dates: start: 20160215, end: 20160215
  102. ADO-TRASTUZUMAB EMTANSINE [Suspect]
     Active Substance: ADO-TRASTUZUMAB EMTANSINE
     Dosage: 172 MG, EVERY 3 WEEK
     Route: 042
     Dates: start: 20151201, end: 20151201
  103. ADO-TRASTUZUMAB EMTANSINE [Suspect]
     Active Substance: ADO-TRASTUZUMAB EMTANSINE
     Dosage: 172 MILLIGRAM, Q3W
     Route: 042
     Dates: start: 20151201, end: 20151221
  104. ADO-TRASTUZUMAB EMTANSINE [Suspect]
     Active Substance: ADO-TRASTUZUMAB EMTANSINE
     Dosage: 140 MILLIGRAM, Q3W
     Route: 042
     Dates: start: 20160215, end: 20160215
  105. ADO-TRASTUZUMAB EMTANSINE [Suspect]
     Active Substance: ADO-TRASTUZUMAB EMTANSINE
     Dosage: 172 MILLIGRAM, EVERY 3 WEEKS
     Route: 042
     Dates: start: 20151201, end: 20161215
  106. ADO-TRASTUZUMAB EMTANSINE [Suspect]
     Active Substance: ADO-TRASTUZUMAB EMTANSINE
     Dosage: 140 MILLIGRAM EVERY 3 WEEKS
     Route: 042
     Dates: start: 20151201, end: 20160215
  107. ADO-TRASTUZUMAB EMTANSINE [Suspect]
     Active Substance: ADO-TRASTUZUMAB EMTANSINE
     Dosage: 172 MILLIGRAM, EVERY 3 WEEKS
     Route: 042
     Dates: start: 20151201, end: 20160215
  108. ADO-TRASTUZUMAB EMTANSINE [Suspect]
     Active Substance: ADO-TRASTUZUMAB EMTANSINE
     Dosage: 172 MG EVERY 3 WEEKS
     Route: 042
  109. ADO-TRASTUZUMAB EMTANSINE [Suspect]
     Active Substance: ADO-TRASTUZUMAB EMTANSINE
     Dosage: UNK UNK, 3/WEEK
     Route: 042
  110. ADO-TRASTUZUMAB EMTANSINE [Suspect]
     Active Substance: ADO-TRASTUZUMAB EMTANSINE
     Dosage: 140 MILLIGRAM, Q3W
     Route: 042
     Dates: start: 20160215, end: 20160215
  111. CAPECITABINE [Suspect]
     Active Substance: CAPECITABINE
     Indication: HER2 positive breast cancer
     Dosage: 3000MG ONCE DAILY (DOSAGE FORM: 82)
     Route: 048
  112. CAPECITABINE [Suspect]
     Active Substance: CAPECITABINE
     Indication: Breast cancer metastatic
     Dosage: 1500 MG PER 0.5 DAY/3000 MG ONCE DAILY
     Route: 048
  113. CAPECITABINE [Suspect]
     Active Substance: CAPECITABINE
     Dosage: 1500 MG PER 0.5 DAY (3000MG ONCE DAILY)
     Route: 048
     Dates: start: 20170210, end: 20170728
  114. CAPECITABINE [Suspect]
     Active Substance: CAPECITABINE
     Dosage: 3000MG ONCE DAILY (DOSAGE FORM: 82)
     Route: 048
  115. CAPECITABINE [Suspect]
     Active Substance: CAPECITABINE
     Dosage: 1500 MG, QD (DOSE FORM 82)
     Route: 048
  116. CAPECITABINE [Suspect]
     Active Substance: CAPECITABINE
     Dosage: 3000 MG, QD(DOSE FORM: 82)
     Route: 048
     Dates: start: 20170210, end: 20170728
  117. CAPECITABINE [Suspect]
     Active Substance: CAPECITABINE
     Dosage: 3000 MILLIGRAM, BID
     Dates: start: 20170210, end: 20170728
  118. CAPECITABINE [Suspect]
     Active Substance: CAPECITABINE
     Dosage: 1500 MG, QD/ADDITIONAL INFO: ADDITIONAL INFO: MISUSE, OFF LABEL USEINTRAVENTRICULAR TABLET
     Dates: start: 20170210, end: 20170728
  119. CAPECITABINE [Suspect]
     Active Substance: CAPECITABINE
     Dosage: 1500 MILLIGRAM, BID
  120. CAPECITABINE [Suspect]
     Active Substance: CAPECITABINE
     Indication: Breast cancer metastatic
     Dosage: 3000 MG, EVERY 1 DAY
     Route: 042
  121. CAPECITABINE [Suspect]
     Active Substance: CAPECITABINE
     Dosage: 3000 MG, EVERY 2 DAY
     Route: 042
     Dates: start: 20170210
  122. CAPECITABINE [Suspect]
     Active Substance: CAPECITABINE
     Dosage: 3000 MG EVERY 1 DAY
     Route: 042
     Dates: start: 20170210, end: 20170728
  123. CAPECITABINE [Suspect]
     Active Substance: CAPECITABINE
     Dosage: 3000 MG, EVERY 1 DAY
     Route: 042
  124. DOMPERIDONE [Concomitant]
     Active Substance: DOMPERIDONE
     Indication: Product used for unknown indication
     Dosage: 10 MILLIGRAM DAILY; DOSE FORM: 245
     Route: 048
     Dates: start: 20160406, end: 20160421
  125. DOMPERIDONE [Concomitant]
     Active Substance: DOMPERIDONE
     Dosage: 30 MG, QD
     Route: 048
     Dates: start: 20160406, end: 20160421
  126. DOMPERIDONE [Concomitant]
     Active Substance: DOMPERIDONE
     Dosage: 30 MILLIGRAM, QD (DOSE FORM 245)
     Route: 048
     Dates: start: 20160406, end: 20160421
  127. DOMPERIDONE [Concomitant]
     Active Substance: DOMPERIDONE
     Dosage: 10 MG 0.3 PER DAY
     Route: 048
     Dates: start: 20160406, end: 20160421
  128. DOMPERIDONE [Concomitant]
     Active Substance: DOMPERIDONE
     Dosage: 10 MG, QD
     Dates: start: 20160406, end: 20160421
  129. MUPIROCIN [Concomitant]
     Active Substance: MUPIROCIN
     Indication: Prophylaxis
     Dosage: 6 PERCENT DAILY;
     Route: 061
     Dates: start: 20160620, end: 20160624
  130. MUPIROCIN [Concomitant]
     Active Substance: MUPIROCIN
     Dosage: 6 PERCENT, QD
     Route: 061
     Dates: start: 20160620, end: 20160624
  131. MUPIROCIN [Concomitant]
     Active Substance: MUPIROCIN
     Dosage: 2 PERCENT, QD
     Route: 061
     Dates: start: 20160620, end: 20160624
  132. MUPIROCIN [Concomitant]
     Active Substance: MUPIROCIN
     Dosage: 2 %, EVERY 0.33 DAY
     Route: 061
     Dates: start: 20160620, end: 20160624
  133. MUPIROCIN [Concomitant]
     Active Substance: MUPIROCIN
     Dosage: UNK, EVERY 0.33 DAY
     Route: 061
     Dates: start: 20160620, end: 20160624
  134. MUPIROCIN [Concomitant]
     Active Substance: MUPIROCIN
     Dosage: 6 %, QD
     Route: 061
     Dates: start: 20160620, end: 20160624
  135. MUPIROCIN [Concomitant]
     Active Substance: MUPIROCIN
     Dosage: 2 %, EVERY 0.33 DAY
     Route: 061
     Dates: start: 20160620, end: 20160624
  136. MUPIROCIN [Concomitant]
     Active Substance: MUPIROCIN
     Dosage: 2 PERCENT, QD
     Route: 061
     Dates: start: 20160620, end: 20160624
  137. AMOXICILLIN\CLAVULANATE POTASSIUM [Concomitant]
     Active Substance: AMOXICILLIN\CLAVULANATE POTASSIUM
     Indication: Lower respiratory tract infection
     Dosage: 625 MILLIGRAM, QD (DOSE FORM: 245) (ADDITONAL INFO ON DRUG: INTRAVENTRICULAR)
     Route: 048
     Dates: start: 20170222, end: 20170228
  138. AMOXICILLIN\CLAVULANATE POTASSIUM [Concomitant]
     Active Substance: AMOXICILLIN\CLAVULANATE POTASSIUM
     Dosage: 1875 MILLIGRAM, QD (DOSE FORM: 245)
     Route: 048
     Dates: start: 20170222, end: 20170228
  139. AMOXICILLIN\CLAVULANATE POTASSIUM [Concomitant]
     Active Substance: AMOXICILLIN\CLAVULANATE POTASSIUM
     Dosage: 625 MILLIGRAM (FREQUENCY: 0.33 DAY)
     Route: 048
     Dates: start: 20170222, end: 20170228
  140. AMOXICILLIN\CLAVULANATE POTASSIUM [Concomitant]
     Active Substance: AMOXICILLIN\CLAVULANATE POTASSIUM
     Dosage: 625 MILLIGRAM, QD
     Route: 048
     Dates: start: 20170222, end: 20170228
  141. AMOXICILLIN\CLAVULANATE POTASSIUM [Concomitant]
     Active Substance: AMOXICILLIN\CLAVULANATE POTASSIUM
     Dosage: 625 MILLIGRAM (FREQUENCY: 0.33 DAY)
     Route: 048
     Dates: start: 20170222, end: 20170228
  142. GRANULOCYTE COLONY-STIMULATING FACTOR NOS [Concomitant]
     Active Substance: GRANULOCYTE COLONY-STIMULATING FACTOR NOS
     Indication: Product used for unknown indication
     Dosage: 300 MICROGRAM (QD FOR 3 DAYS STARTING ON DAY 3 AND 11) RECEIVED 300 MCG FROM 25/JUL/2015
     Route: 058
     Dates: start: 20160421, end: 20160721
  143. GRANULOCYTE COLONY-STIMULATING FACTOR NOS [Concomitant]
     Active Substance: GRANULOCYTE COLONY-STIMULATING FACTOR NOS
     Dosage: 300 UG, QD (DOSE FORM: 120) ALSO RECEIVED 300 MCG FROM 25-JUL-2015 TO 30-JUL-2015
     Route: 058
     Dates: start: 20150725, end: 20150730
  144. GRANULOCYTE COLONY-STIMULATING FACTOR NOS [Concomitant]
     Active Substance: GRANULOCYTE COLONY-STIMULATING FACTOR NOS
     Dosage: 300 MICROGRAM, (QD FOR 3 DAYS STARTING ON DAY 3 AND 11) RECEIVED 300 MCG FROM 25-JUL-2015
     Route: 058
     Dates: start: 20160421, end: 20160721
  145. GENTAMICIN [Concomitant]
     Active Substance: GENTAMICIN
     Indication: Lower respiratory tract infection
     Dosage: UNK
     Route: 042
     Dates: start: 20170213, end: 201702
  146. LOPERAMIDE [Concomitant]
     Active Substance: LOPERAMIDE
     Indication: Diarrhoea
     Dosage: 2 MILLIGRAM, PRN DOSE FORM: 245
     Route: 048
     Dates: start: 20170901, end: 20171124
  147. LOPERAMIDE [Concomitant]
     Active Substance: LOPERAMIDE
     Dosage: DOSE:1, DOSE FORM: 245
     Route: 048
     Dates: start: 20170901, end: 20171124
  148. LOPERAMIDE [Concomitant]
     Active Substance: LOPERAMIDE
     Dosage: UNK 1, PRN
     Route: 048
     Dates: start: 20170901, end: 20171124
  149. LOPERAMIDE [Concomitant]
     Active Substance: LOPERAMIDE
     Dosage: 10 MILLIGRAM, QD
     Dates: start: 20160406, end: 20160421
  150. LOPERAMIDE [Concomitant]
     Active Substance: LOPERAMIDE
     Dosage: 30 MILLIGRAM, QD
     Dates: start: 20160406, end: 20160421
  151. MEROPENEM [Concomitant]
     Active Substance: MEROPENEM
     Indication: Lower respiratory tract infection
     Dosage: UNK
     Route: 042
     Dates: start: 20170215, end: 20170221
  152. PIPERACILLIN SODIUM\TAZOBACTAM SODIUM [Concomitant]
     Active Substance: PIPERACILLIN SODIUM\TAZOBACTAM SODIUM
     Indication: Lower respiratory tract infection
     Dosage: UNK
     Route: 042
     Dates: start: 20170213, end: 20170215
  153. FILGRASTIM [Concomitant]
     Active Substance: FILGRASTIM
     Indication: Product used for unknown indication
     Dosage: 300 MICROGRAM, QD (DOSE FORM: 120)
     Route: 058
     Dates: start: 20150725, end: 20150730
  154. FILGRASTIM [Concomitant]
     Active Substance: FILGRASTIM
     Dosage: 300 MICROGRAM, QD, (EVERY DAY FOR 3 DAYS STARTING ON DAYS 3 AND 11)
     Route: 058
     Dates: start: 20160421, end: 20160712
  155. FILGRASTIM [Concomitant]
     Active Substance: FILGRASTIM
     Dosage: 300 MICROGRAM
     Route: 058
     Dates: start: 20150725, end: 20150730
  156. FILGRASTIM [Concomitant]
     Active Substance: FILGRASTIM
     Dosage: EVERY DAY FOR 3 DAYS STARTING ON DAYS 3 AND 11 , 300 MICROGRAM
     Route: 058
     Dates: start: 20160421, end: 20160712
  157. FILGRASTIM [Concomitant]
     Active Substance: FILGRASTIM
     Dosage: 300 MICROGRAM, QD/300 MICROGRAM, QD (300 MCG,EVERY DAY FOR 3 DAYS STARTING ON DAYS 3 AND 11)
     Dates: start: 20160421, end: 20160712
  158. FILGRASTIM [Concomitant]
     Active Substance: FILGRASTIM
     Dosage: 300 MICROGRAM, QD
  159. CIPROFLOXACIN [Concomitant]
     Active Substance: CIPROFLOXACIN
     Indication: Product used for unknown indication
     Dosage: 500 MILLIGRAM, QD
     Route: 048
     Dates: start: 20151218, end: 20151225
  160. CIPROFLOXACIN [Concomitant]
     Active Substance: CIPROFLOXACIN
     Dosage: 1000 MILLIGRAM, QD (DOSAGE FORM: 245) (ADDITIONAL INFO: INTRAVENTRICULAR)
     Route: 048
     Dates: start: 20151218, end: 20151225
  161. CIPROFLOXACIN [Concomitant]
     Active Substance: CIPROFLOXACIN
     Dosage: 1000 MILLIGRAM, QD (DOSE FORM: 245)
     Route: 048
     Dates: start: 20151218, end: 20151225
  162. CIPROFLOXACIN [Concomitant]
     Active Substance: CIPROFLOXACIN
     Dosage: 500 MILLIGRAM, QD (ADDITIONAL: INTRAVENTRICULAR)
     Route: 048
     Dates: start: 20151218, end: 20151225
  163. AMLODIPINE [Concomitant]
     Active Substance: AMLODIPINE BESYLATE
     Indication: Product used for unknown indication
     Dosage: 10 MILLIGRAM (DOSE FORM: 245)
     Route: 048
  164. AMLODIPINE [Concomitant]
     Active Substance: AMLODIPINE BESYLATE
     Dosage: 10 MILLIGRAM
  165. AMLODIPINE [Concomitant]
     Active Substance: AMLODIPINE BESYLATE
     Dosage: 10 MILLIGRAM
  166. POTASSIUM BICARBONATE\POTASSIUM CHLORIDE [Concomitant]
     Active Substance: POTASSIUM BICARBONATE\POTASSIUM CHLORIDE
     Indication: Nutritional supplementation
     Dosage: 2 DF, QD, 2 TABLETS EVERY DAY (DOSE FORM: 245)
     Route: 048
     Dates: start: 20150828, end: 20150830
  167. POTASSIUM BICARBONATE\POTASSIUM CHLORIDE [Concomitant]
     Active Substance: POTASSIUM BICARBONATE\POTASSIUM CHLORIDE
     Dosage: UNK, BID
     Route: 048
     Dates: start: 20150828, end: 20150830
  168. POTASSIUM BICARBONATE\POTASSIUM CHLORIDE [Concomitant]
     Active Substance: POTASSIUM BICARBONATE\POTASSIUM CHLORIDE
     Dosage: 2 TABLETS EVERY DAY
     Route: 048
     Dates: start: 20150828, end: 20150830
  169. POTASSIUM BICARBONATE\POTASSIUM CHLORIDE [Concomitant]
     Active Substance: POTASSIUM BICARBONATE\POTASSIUM CHLORIDE
     Dosage: 1 DOSAGE FORM, QD (2 TABLETS EVERY DAY)
     Route: 048
     Dates: start: 20150828, end: 20150830
  170. POTASSIUM BICARBONATE\POTASSIUM CHLORIDE [Concomitant]
     Active Substance: POTASSIUM BICARBONATE\POTASSIUM CHLORIDE
     Dosage: 2 DOSAGE FORM, QD,2 TABLETS EVERY DAY
     Route: 048
     Dates: start: 20150828, end: 20150830
  171. POTASSIUM CHLORIDE [Concomitant]
     Active Substance: POTASSIUM CHLORIDE
     Indication: Nutritional supplementation
     Dosage: 2 TABLETS EVERY DAY (FORMULATION: 245)
     Route: 048
     Dates: start: 20150828, end: 20150830
  172. POTASSIUM CHLORIDE [Concomitant]
     Active Substance: POTASSIUM CHLORIDE
     Dosage: 2 TABLETS EVERY DAY (FORMULATION: 245)
     Route: 048
     Dates: start: 20150828, end: 20150830
  173. POTASSIUM CHLORIDE [Concomitant]
     Active Substance: POTASSIUM CHLORIDE
     Dosage: 2 DOSAGE FORM, QD,2 TABLETS EVERY DAY
     Dates: start: 20150828, end: 20150830
  174. POTASSIUM CHLORIDE [Concomitant]
     Active Substance: POTASSIUM CHLORIDE
     Dosage: 2 DOSAGE FORM, QD (2 TABLETS EVERY DAY)
     Dates: start: 20150828, end: 20150830
  175. FOLIC ACID [Concomitant]
     Active Substance: FOLIC ACID
     Indication: Blood folate decreased
     Dosage: 5 MILLIGRAM DAILY; DOSE FORM: 245
     Route: 048
     Dates: start: 20150828, end: 201708
  176. FOLIC ACID [Concomitant]
     Active Substance: FOLIC ACID
     Dosage: 5 MILLIGRAM DAILY (DOSE FORM 245)
     Dates: start: 20150828
  177. FOLIC ACID [Concomitant]
     Active Substance: FOLIC ACID
     Dosage: 5 MILLIGRAM, QD
     Dates: start: 20150828
  178. FOLIC ACID [Concomitant]
     Active Substance: FOLIC ACID
     Dosage: 5 MILLIGRAM, QD
     Dates: start: 20150828, end: 201708
  179. HUMAN RED BLOOD CELL [Concomitant]
     Active Substance: HUMAN RED BLOOD CELL
     Indication: Product used for unknown indication
     Dosage: 2 UNIT, QD
     Route: 042
     Dates: start: 20180526, end: 20180526
  180. HUMAN RED BLOOD CELL [Concomitant]
     Active Substance: HUMAN RED BLOOD CELL
     Dosage: 2 UNIT, QD
     Route: 042
     Dates: start: 20160702, end: 20160702
  181. HUMAN RED BLOOD CELL [Concomitant]
     Active Substance: HUMAN RED BLOOD CELL
     Dosage: 2 UNIT
     Route: 042
     Dates: start: 20160702, end: 20160702
  182. HUMAN RED BLOOD CELL [Concomitant]
     Active Substance: HUMAN RED BLOOD CELL
     Dosage: 2 UNIT
     Route: 042
     Dates: start: 20180526, end: 20180526
  183. HUMAN RED BLOOD CELL [Concomitant]
     Active Substance: HUMAN RED BLOOD CELL
     Dosage: 2 U, QD (2 UNIT)
     Route: 042
     Dates: start: 20160702, end: 20160702
  184. HUMAN RED BLOOD CELL [Concomitant]
     Active Substance: HUMAN RED BLOOD CELL
     Dosage: 2 U, QD
     Route: 042
     Dates: start: 20180526, end: 20180526
  185. HUMAN RED BLOOD CELL [Concomitant]
     Active Substance: HUMAN RED BLOOD CELL
     Indication: Product used for unknown indication
     Dosage: 2 U, QD
     Route: 042
     Dates: start: 20180526, end: 20180526
  186. HUMAN RED BLOOD CELL [Concomitant]
     Active Substance: HUMAN RED BLOOD CELL
     Dosage: 2 U, QD
     Route: 042
     Dates: start: 20160702, end: 20160702

REACTIONS (40)
  - Alopecia [Fatal]
  - Colitis [Fatal]
  - Condition aggravated [Fatal]
  - Decreased appetite [Fatal]
  - Diarrhoea [Fatal]
  - Diarrhoea [Fatal]
  - Disease progression [Fatal]
  - Dysphonia [Fatal]
  - Dyspepsia [Fatal]
  - Fatigue [Fatal]
  - Fatigue [Fatal]
  - Fatigue [Fatal]
  - Folate deficiency [Fatal]
  - Hyperchlorhydria [Fatal]
  - Hypoaesthesia [Fatal]
  - Intentional product misuse [Fatal]
  - Thrombocytopenia [Fatal]
  - Lethargy [Fatal]
  - Mucosal inflammation [Fatal]
  - Nausea [Fatal]
  - Neutropenia [Fatal]
  - Neuropathy peripheral [Fatal]
  - Odynophagia [Fatal]
  - Off label use [Fatal]
  - Palpitations [Fatal]
  - Pancytopenia [Fatal]
  - Product use issue [Fatal]
  - Pyrexia [Fatal]
  - Pyrexia [Fatal]
  - Rash pruritic [Fatal]
  - Throat irritation [Fatal]
  - Tremor [Fatal]
  - Tremor [Fatal]
  - Weight decreased [Fatal]
  - Cough [Fatal]
  - Decreased appetite [Recovered/Resolved]
  - Cough [Recovered/Resolved]
  - Alopecia [Not Recovered/Not Resolved]
  - Dyspepsia [Unknown]
  - Tremor [Unknown]

NARRATIVE: CASE EVENT DATE: 20150601
